FAERS Safety Report 7393970-3 (Version None)
Quarter: 2011Q2

REPORT INFORMATION
  Report Type: 
  Country: None (occurrence: None)
  Receive Date: 20110405
  Receipt Date: 20100416
  Transmission Date: 20111010
  Serious: No
  Sender: FDA-Public Use
  Company Number: US-AMGEN-KDL406652

PATIENT
  Sex: Male

DRUGS (3)
  1. PROLEUKIN [Concomitant]
     Dosage: UNK UNK, UNK
  2. NEULASTA [Suspect]
     Indication: CHEMOTHERAPY
     Dosage: UNK UNK, UNK
  3. UNSPECIFIED ANTINEOPLASTIC AGENT [Concomitant]
     Dosage: UNK UNK, UNK

REACTIONS (1)
  - DRUG INTOLERANCE [None]
